FAERS Safety Report 5302898-1 (Version None)
Quarter: 2007Q2

REPORT INFORMATION
  Report Type: 
  Country: None (occurrence: None)
  Receive Date: 20070419
  Receipt Date: 20070419
  Transmission Date: 20071010
  Serious: Yes (Disabling, Other)
  Sender: FDA-Public Use
  Company Number: None

PATIENT
  Age: 57 Year
  Sex: Female

DRUGS (11)
  1. CIPRO XR [Suspect]
     Indication: STAPHYLOCOCCAL INFECTION
     Dosage: 500 MG DAILY X 3 ORAL
     Route: 048
     Dates: start: 20060501
  2. GLUCOPHAGE [Concomitant]
  3. AVANDIA [Concomitant]
  4. GLYBURIDE [Concomitant]
  5. TENORMIN [Concomitant]
  6. ALTACE [Concomitant]
  7. NEXIUM [Concomitant]
  8. NARCO [Concomitant]
  9. FLEXERIL [Concomitant]
  10. INHALERS [Concomitant]
  11. PLAVIX [Concomitant]

REACTIONS (2)
  - ARTHRALGIA [None]
  - MENISCUS LESION [None]
